FAERS Safety Report 4959818-9 (Version None)
Quarter: 2006Q1

REPORT INFORMATION
  Report Type: 
  Country: None (occurrence: None)
  Receive Date: 20060327
  Receipt Date: 20060310
  Transmission Date: 20060701
  Serious: Yes (Hospitalization, Other)
  Sender: FDA-Public Use
  Company Number: 8011022

PATIENT
  Age: 58 Year
  Sex: Male
  Weight: 110 kg

DRUGS (8)
  1. KEPPRA [Suspect]
     Indication: CONVULSION
     Dosage: 500 MG 2/D PO
     Route: 048
     Dates: start: 20050616, end: 20050705
  2. KEPPRA [Suspect]
     Indication: GLIOBLASTOMA MULTIFORME
     Dosage: 500 MG 2/D PO
     Route: 048
     Dates: start: 20050616, end: 20050705
  3. KEPPRA [Suspect]
     Indication: CONVULSION
     Dosage: PO
     Route: 048
     Dates: start: 20050715
  4. KEPPRA [Suspect]
     Indication: GLIOBLASTOMA MULTIFORME
     Dosage: PO
     Route: 048
     Dates: start: 20050715
  5. FOSPHENYTOIN SODIUM [Suspect]
     Indication: CONVULSION
     Dosage: 2/D IV
     Route: 042
     Dates: start: 20050625, end: 20050628
  6. FOSPHENYTOIN SODIUM [Suspect]
     Indication: GLIOBLASTOMA MULTIFORME
     Dosage: 2/D IV
     Route: 042
     Dates: start: 20050625, end: 20050628
  7. DEXAMETHASONE [Concomitant]
  8. RANITIDINE [Suspect]
     Indication: PROPHYLAXIS
     Dosage: 150 MG 1/D PO
     Dates: start: 20050625, end: 20050705

REACTIONS (7)
  - HAEMATOCRIT DECREASED [None]
  - HAEMOGLOBIN DECREASED [None]
  - HEPATIC FAILURE [None]
  - HEPATIC NECROSIS [None]
  - LETHARGY [None]
  - THROMBOCYTOPENIA [None]
  - WHITE BLOOD CELL COUNT INCREASED [None]
